FAERS Safety Report 4847998-5 (Version None)
Quarter: 2005Q4

REPORT INFORMATION
  Report Type: 
  Country: None (occurrence: None)
  Receive Date: 20051206
  Receipt Date: 20051116
  Transmission Date: 20060501
  Serious: Yes (Death)
  Sender: FDA-Public Use
  Company Number: US200511001646

PATIENT
  Age: 62 Year
  Sex: Female
  Weight: 107 kg

DRUGS (6)
  1. HUMALOG [Suspect]
     Indication: DIABETES MELLITUS NON-INSULIN-DEPENDENT
     Dosage: 8 U, 3/D
  2. HUMULIN N [Suspect]
     Indication: DIABETES MELLITUS NON-INSULIN-DEPENDENT
  3. BYETTA (EXENATIDE) PEN [Concomitant]
  4. LISINOPRIL [Concomitant]
  5. GLUCOPHAGE ^UNS^ (METFORMIN HYDROCHLORIDE) [Concomitant]
  6. SYNTHROID [Concomitant]

REACTIONS (1)
  - GLYCOSYLATED HAEMOGLOBIN INCREASED [None]
